APPROVED DRUG PRODUCT: CLOBAZAM
Active Ingredient: CLOBAZAM
Strength: 2.5MG/ML
Dosage Form/Route: SUSPENSION;ORAL
Application: A210978 | Product #001 | TE Code: AB
Applicant: TARO PHARMACEUTICAL INDUSTRIES LTD
Approved: Apr 15, 2019 | RLD: No | RS: No | Type: RX